FAERS Safety Report 5354023-9 (Version None)
Quarter: 2007Q2

REPORT INFORMATION
  Report Type: 
  Country: None (occurrence: None)
  Receive Date: 20070608
  Receipt Date: 20070608
  Transmission Date: 20071010
  Serious: Yes (Hospitalization)
  Sender: FDA-Public Use
  Company Number: None

PATIENT
  Sex: Female
  Weight: 68 kg

DRUGS (2)
  1. CISPLATIN(119875) [Suspect]
     Dosage: 63 MG
  2. TAXOL [Suspect]
     Dosage: 185 MG

REACTIONS (4)
  - ANAEMIA [None]
  - DEHYDRATION [None]
  - DYSPNOEA [None]
  - ORTHOSTATIC HYPOTENSION [None]
